FAERS Safety Report 24591470 (Version 1)
Quarter: 2024Q4

REPORT INFORMATION
  Report Type: Report from Study
  Country: US (occurrence: US)
  Receive Date: 20241108
  Receipt Date: 20241108
  Transmission Date: 20250115
  Serious: Yes (Hospitalization)
  Sender: ROCHE
  Company Number: US-ROCHE-10000120809

PATIENT
  Age: 74 Year
  Sex: Male

DRUGS (3)
  1. ZELBORAF [Suspect]
     Active Substance: VEMURAFENIB
     Indication: Malignant melanoma
     Dosage: UNKNOWN
     Route: 065
  2. COTELLIC [Suspect]
     Active Substance: COBIMETINIB
     Indication: Malignant melanoma
     Dosage: TAKE 4 TABLET(S) BY MOUTH EVERY 12 HOURS WITH OR WITHOUT FOOD .?SWALLOW WHOLE WITH A GLASS OF WATER.
     Route: 048
  3. COTELLIC [Suspect]
     Active Substance: COBIMETINIB
     Dosage: TAKE 3 TABLET(S) BY MOUTH DAILY ON DAYS1-21 OF A 28 DAY TREATMENT?CYCLE.
     Route: 048

REACTIONS (2)
  - Atrial fibrillation [Unknown]
  - Cardiac disorder [Unknown]
